FAERS Safety Report 10966127 (Version 2)
Quarter: 2015Q2

REPORT INFORMATION
  Report Type: Spontaneous
  Country: US (occurrence: US)
  Receive Date: 20150330
  Receipt Date: 20150417
  Transmission Date: 20150821
  Serious: No
  Sender: FDA-Public Use
  Company Number: 2015SP000943

PATIENT
  Age: 72 Year
  Sex: Female
  Weight: 77 kg

DRUGS (1)
  1. LATUDA [Suspect]
     Active Substance: LURASIDONE HYDROCHLORIDE
     Route: 048
     Dates: start: 20150317, end: 20150325

REACTIONS (3)
  - Drug ineffective [Unknown]
  - Psychotic disorder [Not Recovered/Not Resolved]
  - Bipolar I disorder [Not Recovered/Not Resolved]
